FAERS Safety Report 15420231 (Version 1)
Quarter: 2018Q3

REPORT INFORMATION
  Report Type: Spontaneous
  Country: PT (occurrence: PT)
  Receive Date: 20180924
  Receipt Date: 20180924
  Transmission Date: 20181010
  Serious: Yes (Other)
  Sender: FDA-Public Use
  Company Number: PT-MYLANLABS-2018M1069936

PATIENT
  Age: 24 Year
  Sex: Male

DRUGS (12)
  1. TENOFOVIR [Suspect]
     Active Substance: TENOFOVIR
     Indication: HIV INFECTION
     Route: 065
  2. RALTEGRAVIR. [Suspect]
     Active Substance: RALTEGRAVIR
     Indication: HIV INFECTION
     Route: 065
  3. COBICISTAT [Suspect]
     Active Substance: COBICISTAT
     Indication: HEPATITIS B
  4. EMTRICITABINA [Suspect]
     Active Substance: EMTRICITABINE
     Indication: HIV INFECTION
     Route: 065
  5. EMTRICITABINA [Suspect]
     Active Substance: EMTRICITABINE
     Indication: HEPATITIS B
  6. RALTEGRAVIR. [Suspect]
     Active Substance: RALTEGRAVIR
     Indication: HEPATITIS B
  7. TENOFOVIR [Suspect]
     Active Substance: TENOFOVIR
     Indication: HEPATITIS B
  8. COBICISTAT [Suspect]
     Active Substance: COBICISTAT
     Indication: HIV INFECTION
     Route: 065
  9. RITONAVIR. [Suspect]
     Active Substance: RITONAVIR
     Indication: HIV INFECTION
     Route: 065
  10. RITONAVIR. [Suspect]
     Active Substance: RITONAVIR
     Indication: HEPATITIS B
  11. ELVITEGRAVIR [Suspect]
     Active Substance: ELVITEGRAVIR
     Indication: HIV INFECTION
     Route: 065
  12. ELVITEGRAVIR [Suspect]
     Active Substance: ELVITEGRAVIR
     Indication: HEPATITIS B

REACTIONS (3)
  - Melanocytic naevus [Not Recovered/Not Resolved]
  - Rash [Not Recovered/Not Resolved]
  - Immune reconstitution inflammatory syndrome [Not Recovered/Not Resolved]
